FAERS Safety Report 15073913 (Version 1)
Quarter: 2018Q2

REPORT INFORMATION
  Report Type: Spontaneous
  Country: US (occurrence: US)
  Receive Date: 20180627
  Receipt Date: 20180627
  Transmission Date: 20180711
  Serious: No
  Sender: FDA-Public Use
  Company Number: US-APOTEX-2018AP013499

PATIENT
  Age: 30 Year
  Sex: Female

DRUGS (1)
  1. OLOPATADINE HYDROCHLORIDE OPHTHALMIC SOLUTION USP [Suspect]
     Active Substance: OLOPATADINE HYDROCHLORIDE
     Indication: DUST ALLERGY
     Dosage: 2 DF, ONE DROP ON EACH EYE DAILY
     Route: 047
     Dates: start: 20180502, end: 201805

REACTIONS (18)
  - General physical health deterioration [Unknown]
  - Cough [Recovering/Resolving]
  - Migraine [Recovering/Resolving]
  - Photophobia [Unknown]
  - Influenza like illness [Unknown]
  - Musculoskeletal stiffness [Unknown]
  - Nausea [Unknown]
  - Headache [Recovering/Resolving]
  - Fatigue [Not Recovered/Not Resolved]
  - Pain [Unknown]
  - Eye pain [Recovering/Resolving]
  - Dry eye [Unknown]
  - Back pain [Unknown]
  - Vision blurred [Recovering/Resolving]
  - Eye irritation [Unknown]
  - Excessive eye blinking [Recovering/Resolving]
  - Malaise [Unknown]
  - Eye pruritus [Unknown]

NARRATIVE: CASE EVENT DATE: 20180502
